FAERS Safety Report 21786186 (Version 1)
Quarter: 2022Q4

REPORT INFORMATION
  Report Type: Spontaneous
  Country: IN (occurrence: IN)
  Receive Date: 20221228
  Receipt Date: 20221228
  Transmission Date: 20230112
  Serious: Yes (Other)
  Sender: FDA-Public Use
  Company Number: IN-SUN PHARMACEUTICAL INDUSTRIES LTD-2022R1-370552

PATIENT
  Age: 38 Year
  Sex: Male

DRUGS (2)
  1. DICLOFENAC [Suspect]
     Active Substance: DICLOFENAC
     Indication: Dysuria
     Dosage: UNK
     Route: 013
  2. DICLOFENAC [Suspect]
     Active Substance: DICLOFENAC
     Indication: Abdominal pain

REACTIONS (3)
  - Peripheral ischaemia [Recovered/Resolved]
  - Gangrene [Recovered/Resolved]
  - Incorrect route of product administration [Unknown]
